FAERS Safety Report 13490254 (Version 2)
Quarter: 2017Q2

REPORT INFORMATION
  Report Type: Report from Study
  Country: None (occurrence: US)
  Receive Date: 20170426
  Receipt Date: 20170505
  Transmission Date: 20170830
  Serious: Yes (Hospitalization, Other)
  Sender: FDA-Public Use
  Company Number: US-ABBVIE-17K-163-1879508-00

PATIENT
  Age: 69 Year
  Sex: Female
  Weight: 42.68 kg

DRUGS (8)
  1. VITAMIN D [Concomitant]
     Active Substance: CHOLECALCIFEROL
     Indication: PRODUCT USED FOR UNKNOWN INDICATION
  2. VITAMIN C [Concomitant]
     Active Substance: ASCORBIC ACID
     Indication: PRODUCT USED FOR UNKNOWN INDICATION
  3. HUMIRA [Suspect]
     Active Substance: ADALIMUMAB
     Indication: CROHN^S DISEASE
     Route: 058
     Dates: start: 20140321, end: 201702
  4. VITAMIN B [Concomitant]
     Active Substance: VITAMIN B
     Indication: PRODUCT USED FOR UNKNOWN INDICATION
  5. PREDNISONE. [Concomitant]
     Active Substance: PREDNISONE
     Indication: PRODUCT USED FOR UNKNOWN INDICATION
  6. PROBIOTIC [Concomitant]
     Active Substance: PROBIOTICS NOS
     Indication: PRODUCT USED FOR UNKNOWN INDICATION
  7. HUMIRA [Suspect]
     Active Substance: ADALIMUMAB
     Route: 058
     Dates: start: 2017
  8. MERCAPTOPURINE. [Concomitant]
     Active Substance: MERCAPTOPURINE
     Indication: PRODUCT USED FOR UNKNOWN INDICATION

REACTIONS (16)
  - Haematocrit decreased [Unknown]
  - Gastrointestinal wall thickening [Recovering/Resolving]
  - Blood iron decreased [Recovering/Resolving]
  - Bacterial test positive [Unknown]
  - Haemoglobin decreased [Recovered/Resolved]
  - Haematochezia [Unknown]
  - Fistula [Unknown]
  - Female genital tract fistula [Not Recovered/Not Resolved]
  - Haemoglobin decreased [Unknown]
  - Gastrointestinal inflammation [Unknown]
  - Inflammation [Unknown]
  - Colitis [Recovering/Resolving]
  - Rectal haemorrhage [Recovering/Resolving]
  - Platelet count increased [Unknown]
  - Drug ineffective [Unknown]
  - Platelet count decreased [Unknown]

NARRATIVE: CASE EVENT DATE: 2017
